FAERS Safety Report 4602691-9 (Version None)
Quarter: 2005Q1

REPORT INFORMATION
  Report Type: 
  Country: None (occurrence: None)
  Receive Date: 20050307
  Receipt Date: 20050221
  Transmission Date: 20050727
  Serious: Yes (Hospitalization, Other)
  Sender: FDA-Public Use
  Company Number: 05-129

PATIENT
  Age: 64 Year
  Sex: Female

DRUGS (6)
  1. ISOPTIN RETARD (VERAPAMIL) [Suspect]
     Indication: HYPERTENSION
     Dosage: 120 MG, 1 IN 1 D, ORAL
     Route: 048
     Dates: start: 19940101, end: 20041206
  2. ETHANOL [Suspect]
     Indication: ALCOHOL USE
  3. ZOCOR [Concomitant]
  4. DIAZEPAM [Concomitant]
  5. CITALOPRAM [Concomitant]
  6. PIPAMPERONE [Concomitant]

REACTIONS (15)
  - ALCOHOLISM [None]
  - CHOLELITHIASIS [None]
  - COORDINATION ABNORMAL [None]
  - DEPRESSION [None]
  - DYSKINESIA [None]
  - DYSPHAGIA [None]
  - DYSTONIA [None]
  - HEMIPLEGIA TRANSIENT [None]
  - HYPOTHYROIDISM [None]
  - MOVEMENT DISORDER [None]
  - NEUROTOXICITY [None]
  - OEDEMA PERIPHERAL [None]
  - PAIN [None]
  - PSYCHOTIC DISORDER [None]
  - SPEECH DISORDER [None]
